FAERS Safety Report 4649538-2 (Version None)
Quarter: 2005Q2

REPORT INFORMATION
  Report Type: 
  Country: None (occurrence: None)
  Receive Date: 20050502
  Receipt Date: 20050429
  Transmission Date: 20051028
  Serious: Yes (Hospitalization)
  Sender: FDA-Public Use
  Company Number: PHBS2005NZ06106

PATIENT
  Age: 23 Year
  Sex: Male

DRUGS (2)
  1. MARIJUANA [Suspect]
  2. CLOZARIL [Suspect]
     Dosage: 300 MG/D
     Route: 048
     Dates: start: 20050416

REACTIONS (1)
  - PNEUMOTHORAX [None]
